FAERS Safety Report 19836425 (Version 1)
Quarter: 2021Q3

REPORT INFORMATION
  Report Type: Spontaneous
  Country: US (occurrence: US)
  Receive Date: 20210916
  Receipt Date: 20210916
  Transmission Date: 20211014
  Serious: No
  Sender: FDA-Public Use
  Company Number: US-CELGENEUS-USA-20210901265

PATIENT
  Sex: Female
  Weight: 80.36 kg

DRUGS (8)
  1. REVLIMID [Suspect]
     Active Substance: LENALIDOMIDE
     Indication: PLASMA CELL MYELOMA
     Dosage: 25 MILLIGRAM
     Route: 048
     Dates: start: 201906
  2. REVLIMID [Suspect]
     Active Substance: LENALIDOMIDE
     Dosage: 10 MILLIGRAM
     Route: 048
     Dates: start: 202006
  3. REVLIMID [Suspect]
     Active Substance: LENALIDOMIDE
     Dosage: 5 MILLIGRAM
     Route: 048
     Dates: start: 202105
  4. COVID?19 [Concomitant]
     Indication: COVID-19
     Route: 065
     Dates: start: 20210828, end: 20210828
  5. VARICELLA?ZOSTER VACCINE NOS [Concomitant]
     Active Substance: VARICELLA-ZOSTER VACCINE
     Indication: HERPES ZOSTER
     Route: 065
  6. HEPATITIS C VACCINE [Concomitant]
     Indication: HEPATITIS C
     Route: 065
  7. REVLIMID [Suspect]
     Active Substance: LENALIDOMIDE
     Dosage: 15 ? 10 MILLIGRAM
     Route: 048
     Dates: start: 201908
  8. HEPATITIS B VACCINE [Concomitant]
     Active Substance: HEPATITIS B VIRUS VACCINE
     Indication: HEPATITIS B
     Route: 065

REACTIONS (4)
  - Blood calcium decreased [Not Recovered/Not Resolved]
  - Dizziness [Not Recovered/Not Resolved]
  - Fatigue [Not Recovered/Not Resolved]
  - Thrombocytopenia [Not Recovered/Not Resolved]
